FAERS Safety Report 9626876 (Version 2)
Quarter: 2014Q2

REPORT INFORMATION
  Report Type: Report from Study
  Country: GB (occurrence: GB)
  Receive Date: 20131016
  Receipt Date: 20140508
  Transmission Date: 20141212
  Serious: Yes (Hospitalization, Other)
  Sender: FDA-Public Use
  Company Number: PHHY2013GB112017

PATIENT
  Age: 65 Year
  Sex: Male

DRUGS (5)
  1. METFORMIN [Suspect]
     Indication: TYPE 2 DIABETES MELLITUS
     Dosage: 2000 MG, UNK
     Dates: end: 20111201
  2. GLICLAZIDE [Suspect]
     Indication: TYPE 2 DIABETES MELLITUS
     Dosage: 80 MG, UNK
     Dates: end: 20111201
  3. SAXAGLIPTIN [Suspect]
     Indication: TYPE 2 DIABETES MELLITUS
     Dates: start: 20071027
  4. ASPIRIN [Concomitant]
  5. RAMIPRIL [Concomitant]

REACTIONS (3)
  - General physical health deterioration [Unknown]
  - Hypoglycaemia [Recovered/Resolved]
  - Gastroenteritis [Not Recovered/Not Resolved]
